FAERS Safety Report 19594584 (Version 3)
Quarter: 2022Q4

REPORT INFORMATION
  Report Type: Other
  Country: CA (occurrence: None)
  Receive Date: 20210722
  Receipt Date: 20221206
  Transmission Date: 20230112
  Serious: Yes (Other)
  Sender: FDA-Public Use
  Company Number: CA-ROCHE-2873295

PATIENT
  Sex: Male

DRUGS (7)
  1. OCREVUS [Suspect]
     Active Substance: OCRELIZUMAB
     Indication: Relapsing-remitting multiple sclerosis
     Dosage: CONCENTRATE FOR INTRAVENOUS INFUSION?300 MG AT DAY 0 AND 14, THEN 600 MG EVERY 6 MONTH
     Route: 042
     Dates: start: 20190927
  2. RAMIPRIL [Concomitant]
     Active Substance: RAMIPRIL
  3. DULOXETINE [Concomitant]
     Active Substance: DULOXETINE
  4. BUPROPION [Concomitant]
     Active Substance: BUPROPION
  5. SILDENAFIL [Concomitant]
     Active Substance: SILDENAFIL
  6. GABAPENTIN [Concomitant]
     Active Substance: GABAPENTIN
  7. MODAFINIL [Concomitant]
     Active Substance: MODAFINIL

REACTIONS (1)
  - Bursa calcification [Not Recovered/Not Resolved]
